FAERS Safety Report 8033425-6 (Version None)
Quarter: 2012Q1

REPORT INFORMATION
  Report Type: 
  Country: None (occurrence: None)
  Receive Date: 20120110
  Receipt Date: 20120102
  Transmission Date: 20120608
  Serious: Yes (Other)
  Sender: FDA-Public Use
  Company Number: IT-ROCHE-1027494

PATIENT

DRUGS (3)
  1. GEMCITABINE HYDROCHLORIDE [Suspect]
     Indication: BREAST CANCER
     Route: 065
  2. DOCETAXEL [Suspect]
     Indication: BREAST CANCER
     Route: 065
  3. XELODA [Suspect]
     Indication: BREAST CANCER
     Dosage: TWICE DAILY ON DAYS 1-14
     Route: 065

REACTIONS (7)
  - THROMBOCYTOPENIA [None]
  - FEBRILE NEUTROPENIA [None]
  - ANAEMIA [None]
  - NEUTROPENIA [None]
  - MUCOSAL INFLAMMATION [None]
  - DIARRHOEA [None]
  - PALMAR-PLANTAR ERYTHRODYSAESTHESIA SYNDROME [None]
